FAERS Safety Report 25487592 (Version 1)
Quarter: 2025Q2

REPORT INFORMATION
  Report Type: Spontaneous
  Country: US (occurrence: None)
  Receive Date: 20250627
  Receipt Date: 20250627
  Transmission Date: 20250716
  Serious: Yes (Other)
  Sender: ENCUBE ETHICALS
  Company Number: US-Encube-001986

PATIENT
  Age: 60 Year
  Sex: Male

DRUGS (1)
  1. CLINDAMYCIN PHOSPHATE [Suspect]
     Active Substance: CLINDAMYCIN PHOSPHATE
     Indication: Tooth infection

REACTIONS (2)
  - Pneumatosis intestinalis [Recovering/Resolving]
  - Off label use [Unknown]
